FAERS Safety Report 9210387 (Version 2)
Quarter: 2013Q2

REPORT INFORMATION
  Report Type: Spontaneous
  Country: US (occurrence: US)
  Receive Date: 20130404
  Receipt Date: 20130419
  Transmission Date: 20140414
  Serious: Yes (Hospitalization)
  Sender: FDA-Public Use
  Company Number: US-009507513-1304USA001702

PATIENT
  Age: 20 Year
  Sex: Female

DRUGS (3)
  1. VICTRELIS [Suspect]
     Indication: CHRONIC HEPATITIS C
     Dosage: 800 MG, TID
     Route: 048
     Dates: start: 20130208
  2. PEGINTRON [Suspect]
     Dosage: UNK
     Dates: start: 20130111
  3. REBETOL [Suspect]
     Indication: CHRONIC HEPATITIS C
     Dosage: UNK
     Dates: start: 20130111

REACTIONS (5)
  - Staphylococcal infection [Unknown]
  - Pneumonia staphylococcal [Unknown]
  - Anaemia [Unknown]
  - Pneumonia [Unknown]
  - Incisional drainage [Unknown]
